FAERS Safety Report 9009153 (Version 7)
Quarter: 2016Q3

REPORT INFORMATION
  Report Type: Report from Study
  Country: CA (occurrence: CA)
  Receive Date: 20130111
  Receipt Date: 20160729
  Transmission Date: 20161109
  Serious: Yes (Other)
  Sender: FDA-Public Use
  Company Number: CA-ROCHE-1172599

PATIENT
  Age: 28 Year
  Sex: Male
  Weight: 71.5 kg

DRUGS (4)
  1. ACTEMRA [Suspect]
     Active Substance: TOCILIZUMAB
     Indication: RHEUMATOID ARTHRITIS
     Route: 042
     Dates: start: 20120203
  2. ACTEMRA [Suspect]
     Active Substance: TOCILIZUMAB
     Route: 042
     Dates: start: 20120328
  3. METHOTREXATE. [Concomitant]
     Active Substance: METHOTREXATE
  4. PREDNISONE. [Concomitant]
     Active Substance: PREDNISONE

REACTIONS (5)
  - Pneumonia [Unknown]
  - Pulmonary mass [Not Recovered/Not Resolved]
  - Weight decreased [Unknown]
  - Bronchitis [Unknown]
  - Gingival disorder [Unknown]

NARRATIVE: CASE EVENT DATE: 201212
